FAERS Safety Report 6913895-4 (Version None)
Quarter: 2010Q3

REPORT INFORMATION
  Report Type: 
  Country: None (occurrence: None)
  Receive Date: 20100809
  Receipt Date: 20100802
  Transmission Date: 20110219
  Serious: Yes (Disabling)
  Sender: FDA-Public Use
  Company Number: BE-SANOFI-AVENTIS-2010SA020507

PATIENT
  Age: 59 Year
  Sex: Male
  Weight: 75 kg

DRUGS (5)
  1. MULTAQ [Suspect]
     Indication: HEART RATE ABNORMAL
     Route: 048
     Dates: start: 20100319, end: 20100401
  2. CORDARONE [Suspect]
     Indication: HEART RATE ABNORMAL
     Dosage: DOSE:2 UNIT(S)
     Route: 048
     Dates: start: 20100201, end: 20100318
  3. CORDARONE [Suspect]
     Dosage: DOSE:2 UNIT(S)
     Route: 048
     Dates: start: 20100402
  4. ASPIRIN [Concomitant]
     Indication: PRODUCT USED FOR UNKNOWN INDICATION
  5. CRESTOR [Concomitant]
     Indication: PRODUCT USED FOR UNKNOWN INDICATION

REACTIONS (2)
  - PAPILLOEDEMA [None]
  - VISUAL IMPAIRMENT [None]
